FAERS Safety Report 24718406 (Version 4)
Quarter: 2025Q1

REPORT INFORMATION
  Report Type: Spontaneous
  Country: US (occurrence: US)
  Receive Date: 20241210
  Receipt Date: 20250214
  Transmission Date: 20250409
  Serious: Yes (Hospitalization, Other)
  Sender: BRISTOL-MYERS SQUIBB COMPANY
  Company Number: US-BRISTOL-MYERS SQUIBB COMPANY-2024-191049

PATIENT
  Age: 74 Year
  Sex: Female
  Weight: 71.2 kg

DRUGS (1)
  1. POMALYST [Suspect]
     Active Substance: POMALIDOMIDE
     Indication: Plasma cell myeloma
     Dosage: 3WKSON / 1WKOFF
     Route: 048
     Dates: start: 202008

REACTIONS (5)
  - Sepsis [Unknown]
  - Sinusitis [Unknown]
  - Urinary tract infection [Recovering/Resolving]
  - Hypotension [Recovered/Resolved]
  - Asthenia [Unknown]

NARRATIVE: CASE EVENT DATE: 20241201
